FAERS Safety Report 4396125-X (Version None)
Quarter: 2004Q3

REPORT INFORMATION
  Report Type: 
  Country: None (occurrence: None)
  Receive Date: 20040709
  Receipt Date: 20030411
  Transmission Date: 20050211
  Serious: Yes (Hospitalization)
  Sender: FDA-Public Use
  Company Number: 169487

PATIENT
  Age: 37 Year
  Sex: Female

DRUGS (6)
  1. AVONEX [Suspect]
     Indication: MULTIPLE SCLEROSIS
     Dosage: 30 MCG QW IM
     Dates: start: 20001007, end: 20030201
  2. AVONEX [Suspect]
     Indication: MULTIPLE SCLEROSIS
     Dosage: 30 MCG QW IM
     Dates: start: 20030227
  3. NEURONTIN [Concomitant]
  4. NEXIUM [Concomitant]
  5. ZOLOFT [Concomitant]
  6. BACLOFEN [Concomitant]

REACTIONS (8)
  - ANAEMIA POSTOPERATIVE [None]
  - BONE MARROW TOXICITY [None]
  - HYPOCHROMIC ANAEMIA [None]
  - MENORRHAGIA [None]
  - MICROCYTIC ANAEMIA [None]
  - OVARIAN CYST RUPTURED [None]
  - PLATELET COUNT INCREASED [None]
  - SERUM FERRITIN DECREASED [None]
